FAERS Safety Report 8777592 (Version 1)
Quarter: 2012Q4

REPORT INFORMATION
  Report Type: 
  Country: US (occurrence: US)
  Receive Date: 20120910
  Receipt Date: 20120910
  Transmission Date: 20130627
  Serious: Yes (Death, Other)
  Sender: FDA-Public Use
  Company Number: US-CELGENEUS-163-21880-12090267

PATIENT
  Age: 64 Year
  Sex: Female

DRUGS (3)
  1. REVLIMID [Suspect]
     Indication: MULTIPLE MYELOMA
     Dosage: 7.5 Milligram
     Route: 048
     Dates: start: 200803
  2. REVLIMID [Suspect]
     Dosage: 5 Milligram
     Route: 048
     Dates: start: 201203, end: 201204
  3. EXJADE [Suspect]
     Indication: MDS
     Dosage: 2000 Milligram
     Route: 048
     Dates: start: 201208, end: 201209

REACTIONS (3)
  - Haemorrhage intracranial [Fatal]
  - Myelodysplastic syndrome [Unknown]
  - Platelet count decreased [Unknown]
